FAERS Safety Report 26047568 (Version 2)
Quarter: 2025Q4

REPORT INFORMATION
  Report Type: Spontaneous
  Country: EU (occurrence: EU)
  Receive Date: 20251114
  Receipt Date: 20251124
  Transmission Date: 20260118
  Serious: Yes (Death, Hospitalization)
  Sender: SANDOZ
  Company Number: None

PATIENT
  Age: 79 Year
  Sex: Male
  Weight: 66 kg

DRUGS (12)
  1. CARBOPLATIN [Suspect]
     Active Substance: CARBOPLATIN
     Indication: Lung adenocarcinoma
     Dosage: 340 MG IN COMBINATION WITH  PEMBROLIZUMAB AND PEMETREXED EVERY 3  WEEKS.
     Route: 042
     Dates: start: 20251021, end: 20251021
  2. KEYTRUDA [Suspect]
     Active Substance: PEMBROLIZUMAB
     Indication: Lung adenocarcinoma
     Dosage: 200 MG EVERY 3 WEEKS IN COMBINATION  WITH PEMETREXED AND CARBOPLATIN.
     Route: 042
     Dates: start: 20251021, end: 20251021
  3. PEMETREXED [Suspect]
     Active Substance: PEMETREXED
     Indication: Lung adenocarcinoma
     Dosage: 650 MG EVERY 3 WEEKS IN COMBINATION  WITH PEMBROLIZUMAB AND CARBOPLATIN
     Route: 042
     Dates: start: 20251021, end: 20251021
  4. PEMETREXED [Suspect]
     Active Substance: PEMETREXED
     Indication: Lung adenocarcinoma
     Dosage: 650MG EVERY 3 WEEKS IN  COMBINATION WITH PEMBROLIZUMAB  AND CARBOPLATIN
     Route: 042
     Dates: start: 20251021, end: 20251021
  5. CYANOCOBALAMIN\FOLIC ACID\PYRIDOXINE HYDROCHLORIDE [Concomitant]
     Active Substance: CYANOCOBALAMIN\FOLIC ACID\PYRIDOXINE HYDROCHLORIDE
     Indication: Product used for unknown indication
     Dosage: UNK
     Route: 048
     Dates: start: 20251002
  6. Dobetin [Concomitant]
     Indication: Product used for unknown indication
     Dosage: DOBETIN 1000 MCG, 1 VIAL EVERY 9 WEEKS
     Route: 030
     Dates: start: 20251002
  7. ENOXAPARIN SODIUM [Concomitant]
     Active Substance: ENOXAPARIN SODIUM
     Indication: Product used for unknown indication
     Dosage: 6000 IU 9ENOXAPARINA 6000 UI 1 FL BID)
     Route: 058
  8. MOVICOL [Concomitant]
     Active Substance: POLYETHYLENE GLYCOL 3350\POTASSIUM CHLORIDE\SODIUM BICARBONATE\SODIUM CHLORIDE
     Indication: Product used for unknown indication
     Dosage: UNK
     Route: 048
  9. MS CONTIN [Concomitant]
     Active Substance: MORPHINE SULFATE
     Indication: Product used for unknown indication
     Dosage: 20 MG, BID
     Route: 048
  10. MORPHINE SULFATE [Concomitant]
     Active Substance: MORPHINE SULFATE
     Indication: Product used for unknown indication
     Dosage: ORAMORPH 20 MG/ML, 8 DROPS AS NEEDED
     Route: 048
  11. ATORVASTATIN [Concomitant]
     Active Substance: ATORVASTATIN
     Indication: Product used for unknown indication
     Dosage: 10 MG, QD
     Route: 048
  12. RAMIPRIL [Concomitant]
     Active Substance: RAMIPRIL
     Indication: Product used for unknown indication
     Dosage: 2.5MG PER DAY
     Route: 048

REACTIONS (1)
  - Ischaemic stroke [Fatal]

NARRATIVE: CASE EVENT DATE: 20251028
